FAERS Safety Report 11371548 (Version 1)
Quarter: 2015Q3

REPORT INFORMATION
  Report Type: Spontaneous
  Country: KR (occurrence: KR)
  Receive Date: 20150812
  Receipt Date: 20150812
  Transmission Date: 20151125
  Serious: Yes (Hospitalization)
  Sender: FDA-Public Use
  Company Number: PHHY2015KR094130

PATIENT
  Age: 60 Year
  Sex: Female

DRUGS (1)
  1. FLUORESCEINE 10% FAURE [Suspect]
     Active Substance: FLUORESCEIN SODIUM
     Indication: DIAGNOSTIC PROCEDURE
     Dosage: 500 MG/ML, UNK
     Route: 042

REACTIONS (6)
  - Vomiting [Recovered/Resolved]
  - Chest discomfort [Recovered/Resolved]
  - Hypotension [Recovered/Resolved]
  - Nausea [Recovered/Resolved]
  - Anaphylactic reaction [Recovered/Resolved]
  - Headache [Recovered/Resolved]
